FAERS Safety Report 24622796 (Version 3)
Quarter: 2025Q2

REPORT INFORMATION
  Report Type: Report from Study
  Country: CA (occurrence: CA)
  Receive Date: 20241115
  Receipt Date: 20250606
  Transmission Date: 20250717
  Serious: Yes (Hospitalization, Other)
  Sender: CELLTRION
  Company Number: CA-CELLTRION INC.-2024CA016697

PATIENT

DRUGS (1)
  1. ADALIMUMAB-AATY [Suspect]
     Active Substance: ADALIMUMAB-AATY
     Indication: Uveitis
     Route: 058

REACTIONS (5)
  - Surgery [Unknown]
  - Illness [Not Recovered/Not Resolved]
  - Injection site swelling [Unknown]
  - Injection site urticaria [Unknown]
  - Intentional dose omission [Unknown]
